FAERS Safety Report 5713150-4 (Version None)
Quarter: 2008Q2

REPORT INFORMATION
  Report Type: 
  Country: None (occurrence: None)
  Receive Date: 20080422
  Receipt Date: 20080415
  Transmission Date: 20081010
  Serious: Yes (Other)
  Sender: FDA-Public Use
  Company Number: US-ALLERGAN-0803503US

PATIENT
  Age: 82 Year
  Sex: Female

DRUGS (6)
  1. PRED FORTE [Suspect]
     Indication: POSTOPERATIVE CARE
     Dosage: 1 GTT, QID
     Route: 047
     Dates: start: 20080207, end: 20080227
  2. CIPRO [Concomitant]
  3. THYROXIN [Concomitant]
  4. MULTI B COMPLEX [Concomitant]
  5. ASPIRIN [Concomitant]
  6. ASCORBIC ACID [Concomitant]

REACTIONS (3)
  - ENDODONTIC PROCEDURE [None]
  - FACIAL PAIN [None]
  - TRIGEMINAL NEURALGIA [None]
